FAERS Safety Report 11425009 (Version 1)
Quarter: 2015Q3

REPORT INFORMATION
  Report Type: Spontaneous
  Country: US (occurrence: US)
  Receive Date: 20150821
  Receipt Date: 20150821
  Transmission Date: 20151125
  Serious: No
  Sender: FDA-Public Use
  Company Number: US-ELI_LILLY_AND_COMPANY-US201301009978

PATIENT
  Age: 82 Year
  Sex: Female

DRUGS (2)
  1. HUMULIN N [Suspect]
     Active Substance: INSULIN HUMAN
     Indication: DIABETES MELLITUS
     Dosage: 20 U, EACH MORNING
  2. HUMULIN N [Suspect]
     Active Substance: INSULIN HUMAN
     Dosage: 10 U, QD

REACTIONS (4)
  - Poor peripheral circulation [Unknown]
  - Blood glucose increased [Unknown]
  - Hypertension [Unknown]
  - Drug ineffective [Unknown]

NARRATIVE: CASE EVENT DATE: 201301
